FAERS Safety Report 5755342-4 (Version None)
Quarter: 2008Q2

REPORT INFORMATION
  Report Type: 
  Country: None (occurrence: None)
  Receive Date: 20080602
  Receipt Date: 20080528
  Transmission Date: 20081010
  Serious: Yes (Death, Hospitalization, Other)
  Sender: FDA-Public Use
  Company Number: RO-BRISTOL-MYERS SQUIBB COMPANY-14210538

PATIENT
  Age: 45 Year
  Sex: Male

DRUGS (1)
  1. BARACLUDE TABS [Suspect]
     Indication: HEPATITIS B
     Route: 048

REACTIONS (5)
  - HEPATIC CIRRHOSIS [None]
  - MULTI-ORGAN FAILURE [None]
  - PERITONITIS BACTERIAL [None]
  - PORTAL VEIN THROMBOSIS [None]
  - RENAL IMPAIRMENT [None]
